FAERS Safety Report 7005240-3 (Version None)
Quarter: 2010Q3

REPORT INFORMATION
  Report Type: 
  Country: None (occurrence: None)
  Receive Date: 20100902
  Receipt Date: 20100601
  Transmission Date: 20110219
  Serious: Yes (Hospitalization, Disabling, Other)
  Sender: FDA-Public Use
  Company Number: 236425USA

PATIENT
  Sex: Male

DRUGS (2)
  1. METOCLOPRAMIDE [Suspect]
     Indication: NAUSEA
     Dosage: 10 MG (10 MG, 1 IN 1 D)
     Dates: start: 20010101
  2. METOCLOPRAMIDE [Suspect]
     Indication: VOMITING
     Dosage: 10 MG (10 MG, 1 IN 1 D)
     Dates: start: 20010101

REACTIONS (8)
  - AKATHISIA [None]
  - DYSARTHRIA [None]
  - DYSKINESIA [None]
  - HUNGER [None]
  - STEREOTYPY [None]
  - TARDIVE DYSKINESIA [None]
  - TREMOR [None]
  - WEIGHT DECREASED [None]
